FAERS Safety Report 11006926 (Version 1)
Quarter: 2015Q2

REPORT INFORMATION
  Report Type: Spontaneous
  Country: US (occurrence: US)
  Receive Date: 20150409
  Receipt Date: 20150409
  Transmission Date: 20150821
  Serious: No
  Sender: FDA-Public Use
  Company Number: US-ALLERGAN-1420075US

PATIENT
  Age: 55 Year
  Sex: Female

DRUGS (1)
  1. LATISSE [Suspect]
     Active Substance: BIMATOPROST
     Indication: GROWTH OF EYELASHES
     Dosage: 2 GTT, UNK
     Route: 061
     Dates: start: 20140911, end: 20140913

REACTIONS (3)
  - Eye swelling [Unknown]
  - Eyelid oedema [Unknown]
  - Eye discharge [Unknown]

NARRATIVE: CASE EVENT DATE: 20140914
